FAERS Safety Report 16950737 (Version 2)
Quarter: 2019Q4

REPORT INFORMATION
  Report Type: Spontaneous
  Country: CA (occurrence: CA)
  Receive Date: 20191023
  Receipt Date: 20191028
  Transmission Date: 20200122
  Serious: Yes (Hospitalization, Other)
  Sender: FDA-Public Use
  Company Number: CA-PFIZER INC-2019452105

PATIENT
  Age: 39 Year
  Sex: Female

DRUGS (11)
  1. SALAZOPYRIN [Suspect]
     Active Substance: SULFASALAZINE
     Indication: CROHN^S DISEASE
     Dosage: UNK
     Dates: start: 1997
  2. ENOXAPARIN [Concomitant]
     Active Substance: ENOXAPARIN
     Dosage: 40 MG, DAILY, EVERY 24 HOURS
     Route: 058
  3. PREDNISONE. [Concomitant]
     Active Substance: PREDNISONE
     Dosage: 10 MG, DAILY
  4. PREDNISONE. [Concomitant]
     Active Substance: PREDNISONE
     Dosage: LOW DOSE
     Dates: start: 2013
  5. DALTEPARIN [Concomitant]
     Active Substance: DALTEPARIN
     Dosage: UNK
     Dates: start: 201906
  6. MELATONIN [Concomitant]
     Active Substance: MELATONIN
     Dosage: 6 MG, AT BEDTIME
  7. LACTULOSE. [Concomitant]
     Active Substance: LACTULOSE
     Dosage: PRN (AS NEEDED)
  8. TRAMACET [Concomitant]
     Active Substance: ACETAMINOPHEN\TRAMADOL
     Dosage: UNK UNK, AS NEEDED
  9. HYDROMORPHONE [Concomitant]
     Active Substance: HYDROMORPHONE
     Dosage: PRN ( AS NEEDED)
  10. VITAMIN B12 [Concomitant]
     Active Substance: CYANOCOBALAMIN
     Dosage: 100 UG, DAILY
  11. SUFENTANIL [Concomitant]
     Active Substance: SUFENTANIL
     Dosage: 25 MG, PRN ( AS NEEDED)
     Route: 060

REACTIONS (11)
  - Enterocutaneous fistula [Unknown]
  - Back pain [Unknown]
  - Crohn^s disease [Unknown]
  - Cellulitis [Recovered/Resolved]
  - Disease recurrence [Unknown]
  - Erythema [Unknown]
  - Arthralgia [Unknown]
  - Cervical cyst [Unknown]
  - Abdominal abscess [Recovered/Resolved]
  - Post procedural complication [Unknown]
  - Wound infection [Recovered/Resolved]

NARRATIVE: CASE EVENT DATE: 2013
